FAERS Safety Report 18395063 (Version 6)
Quarter: 2021Q3

REPORT INFORMATION
  Report Type: Report from Study
  Country: US (occurrence: US)
  Receive Date: 20201016
  Receipt Date: 20210727
  Transmission Date: 20211014
  Serious: Yes (Hospitalization)
  Sender: FDA-Public Use
  Company Number: US-SEATTLE GENETICS-2020SGN04423

PATIENT
  Age: 65 Year
  Sex: Female

DRUGS (16)
  1. ENSURE ENLIVE [Concomitant]
  2. MAGNESIUM CITRATE. [Concomitant]
     Active Substance: MAGNESIUM CITRATE
  3. TRAZODONE HYDROCHLORIDE. [Concomitant]
     Active Substance: TRAZODONE HYDROCHLORIDE
  4. TUCATINIB [Suspect]
     Active Substance: TUCATINIB
     Dosage: 200 MG, BID
  5. TUCATINIB [Suspect]
     Active Substance: TUCATINIB
     Dosage: 150 MG, BID
  6. METHADONE [Concomitant]
     Active Substance: METHADONE HYDROCHLORIDE
  7. METOCLOPRAMIDE. [Concomitant]
     Active Substance: METOCLOPRAMIDE
  8. TUCATINIB [Suspect]
     Active Substance: TUCATINIB
     Dosage: 50 MG
  9. PREDNISONE. [Suspect]
     Active Substance: PREDNISONE
     Dosage: 10 MG
  10. CEPHALEXIN HYDROCHLORIDE [Concomitant]
     Active Substance: CEPHALEXIN HYDROCHLORIDE
  11. NICOTINE STEP 2 [Concomitant]
  12. ONDANSETRON [Concomitant]
     Active Substance: ONDANSETRON
  13. OLANZAPINE. [Concomitant]
     Active Substance: OLANZAPINE
  14. HERCEPTIN [Concomitant]
     Active Substance: TRASTUZUMAB
  15. TUCATINIB [Suspect]
     Active Substance: TUCATINIB
     Indication: BREAST CANCER FEMALE
     Dosage: 150 MG, UNK
     Route: 065
     Dates: start: 20201001
  16. DILAUDID [Concomitant]
     Active Substance: HYDROMORPHONE HYDROCHLORIDE

REACTIONS (6)
  - Hypertension [Unknown]
  - Disease progression [Unknown]
  - Dyspnoea [Unknown]
  - Renal impairment [Unknown]
  - Nausea [Unknown]
  - Vomiting [Unknown]

NARRATIVE: CASE EVENT DATE: 20201001
